FAERS Safety Report 8578308-8 (Version None)
Quarter: 2012Q2

REPORT INFORMATION
  Report Type: 
  Country: None (occurrence: None)
  Receive Date: 20120423
  Receipt Date: 20100308
  Transmission Date: 20120825
  Serious: Yes (Other)
  Sender: FDA-Public Use
  Company Number: PHHY2010US08925

PATIENT
  Age: 90 Year
  Sex: Female
  Weight: 59 kg

DRUGS (16)
  1. ALBUTEROL SULFATE (SALBUTAMOL SULFATE) SOLUTION [Concomitant]
  2. IPRATROPIUM BROMIDE [Concomitant]
  3. SINGULAIR [Concomitant]
  4. EXJADE [Suspect]
     Indication: CHELATION THERAPY
     Dosage: 1250 MG, QD, ORAL
     Route: 048
     Dates: start: 20081216
  5. CALCIUM CARBONATE WNITAMIN D NOS (CALCIUM CARBONATE, VITAMIN D NOS) [Concomitant]
  6. PHENERGAN HCL [Concomitant]
  7. THERAGRAN-M (MINERALS NOS, VITAMINS NOS) [Concomitant]
  8. ADVAIR HFA [Concomitant]
  9. COZAAR [Concomitant]
  10. LIPITOR [Concomitant]
  11. VITAMIN D [Concomitant]
  12. GAS X (SIMETICONE) TABLET [Concomitant]
  13. LASIX [Concomitant]
  14. VSL#3 (LACTOBACILLUS NOS) [Concomitant]
  15. NEXIUM [Concomitant]
  16. VITAMIN B12 [Concomitant]

REACTIONS (5)
  - LEUKOPENIA [None]
  - DIARRHOEA [None]
  - STOMATITIS [None]
  - CONDITION AGGRAVATED [None]
  - MOUTH ULCERATION [None]
